FAERS Safety Report 11965402 (Version 1)
Quarter: 2016Q1

REPORT INFORMATION
  Report Type: Spontaneous
  Country: US (occurrence: US)
  Receive Date: 20160127
  Receipt Date: 20160127
  Transmission Date: 20160526
  Serious: No
  Sender: FDA-Public Use
  Company Number: US-BAYER-2016-015722

PATIENT
  Age: 44 Year
  Sex: Male
  Weight: 97.51 kg

DRUGS (5)
  1. METOPROLOL. [Concomitant]
     Active Substance: METOPROLOL
  2. BUPROPION. [Concomitant]
     Active Substance: BUPROPION
  3. CITALOPRAM [Concomitant]
     Active Substance: CITALOPRAM HYDROBROMIDE
  4. ALEVE PM [Suspect]
     Active Substance: DIPHENHYDRAMINE HYDROCHLORIDE\NAPROXEN SODIUM
     Indication: ANALGESIC THERAPY
     Dosage: 2 DF, ONCE
     Route: 048
     Dates: start: 20160124, end: 20160124
  5. ALEVE [Suspect]
     Active Substance: NAPROXEN SODIUM
     Indication: ANALGESIC THERAPY
     Dosage: 2 DF, QD
     Route: 048
     Dates: start: 20160122, end: 20160124

REACTIONS (4)
  - Limb discomfort [Not Recovered/Not Resolved]
  - Product use issue [None]
  - Pain in extremity [Not Recovered/Not Resolved]
  - Insomnia [None]

NARRATIVE: CASE EVENT DATE: 20160122
